FAERS Safety Report 10149190 (Version 1)
Quarter: 2014Q2

REPORT INFORMATION
  Report Type: Spontaneous
  Country: GB (occurrence: None)
  Receive Date: 20140430
  Receipt Date: 20140430
  Transmission Date: 20141212
  Serious: Yes (Other)
  Sender: FDA-Public Use
  Company Number: 2014-001172

PATIENT
  Age: 20 Year
  Sex: Male

DRUGS (1)
  1. SARAFEM [Suspect]
     Indication: DEPRESSED MOOD
     Route: 048

REACTIONS (2)
  - Haemoptysis [None]
  - Left ventricular hypertrophy [None]
